FAERS Safety Report 6192261-6 (Version None)
Quarter: 2009Q2

REPORT INFORMATION
  Report Type: 
  Country: None (occurrence: None)
  Receive Date: 20090515
  Receipt Date: 20090506
  Transmission Date: 20091009
  Serious: Yes (Hospitalization, Other)
  Sender: FDA-Public Use
  Company Number: PHHY2009GB17160

PATIENT
  Sex: Female

DRUGS (1)
  1. SYNTOMETRINE [Suspect]
     Indication: LABOUR INDUCTION
     Dosage: UNK
     Route: 062
     Dates: start: 20070411

REACTIONS (5)
  - DRUG EXPOSURE DURING PREGNANCY [None]
  - HYPOXIA [None]
  - INTRA-UTERINE DEATH [None]
  - POISONING DELIBERATE [None]
  - UTERINE CONTRACTIONS DURING PREGNANCY [None]
